FAERS Safety Report 20634549 (Version 5)
Quarter: 2022Q3

REPORT INFORMATION
  Report Type: Report from Study
  Country: US (occurrence: US)
  Receive Date: 20220325
  Receipt Date: 20220921
  Transmission Date: 20221027
  Serious: No
  Sender: FDA-Public Use
  Company Number: US-NOVARTISTESTPH-NVSC2022US067424

PATIENT
  Sex: Female
  Weight: 58.322 kg

DRUGS (5)
  1. TREPROSTINIL [Suspect]
     Active Substance: TREPROSTINIL
     Indication: Pulmonary arterial hypertension
     Dosage: (66NG/KG/MIN), CONT, (5 MG/ML)
     Route: 042
     Dates: start: 20220111
  2. TREPROSTINIL [Suspect]
     Active Substance: TREPROSTINIL
     Dosage: (74NG/KG/MIN), CONT, (1MG/ML)
     Route: 042
     Dates: start: 20220111
  3. AMBRISENTAN [Concomitant]
     Active Substance: AMBRISENTAN
     Indication: Product used for unknown indication
     Dosage: UNK
     Route: 065
  4. SILDENAFIL CITRATE [Concomitant]
     Active Substance: SILDENAFIL CITRATE
     Indication: Product used for unknown indication
     Dosage: UNK
     Route: 065
  5. TADALAFIL [Concomitant]
     Active Substance: TADALAFIL
     Indication: Product used for unknown indication
     Dosage: UNK
     Route: 065

REACTIONS (6)
  - Syncope [Unknown]
  - Photophobia [Unknown]
  - Dyspnoea exertional [Unknown]
  - Headache [Unknown]
  - Pain in jaw [Unknown]
  - Hypotension [Unknown]
